FAERS Safety Report 13041410 (Version 1)
Quarter: 2016Q4

REPORT INFORMATION
  Report Type: Spontaneous
  Country: US (occurrence: US)
  Receive Date: 20161219
  Receipt Date: 20161219
  Transmission Date: 20170207
  Serious: Yes (Life-Threatening)
  Sender: FDA-Public Use
  Company Number: US-STI PHARMA LLC-1060988

PATIENT
  Sex: Male

DRUGS (3)
  1. RITUXAN [Suspect]
     Active Substance: RITUXIMAB
  2. DEXAMETHASONE. [Suspect]
     Active Substance: DEXAMETHASONE
  3. IMMUNOGLOBULIN INTRAVENOUS G [Suspect]
     Active Substance: HUMAN IMMUNOGLOBULIN G

REACTIONS (1)
  - Septic shock [Unknown]
